FAERS Safety Report 20955393 (Version 1)
Quarter: 2022Q2

REPORT INFORMATION
  Report Type: Spontaneous
  Country: US (occurrence: None)
  Receive Date: 20220613
  Receipt Date: 20220613
  Transmission Date: 20220721
  Serious: Yes (Other)
  Sender: FDA-Public Use
  Company Number: None

PATIENT
  Age: 71 Year
  Sex: Male

DRUGS (8)
  1. MAVYRET [Suspect]
     Active Substance: GLECAPREVIR\PIBRENTASVIR
     Indication: Product used for unknown indication
     Dates: start: 20220526, end: 20220607
  2. ROSUVASTATIN [Concomitant]
     Active Substance: ROSUVASTATIN
  3. METOPROLOL [Concomitant]
     Active Substance: METOPROLOL
  4. HYDROCHLOROTHIAZIDE [Concomitant]
     Active Substance: HYDROCHLOROTHIAZIDE
  5. TAMSULOSIN [Concomitant]
     Active Substance: TAMSULOSIN
  6. TADALAFIL [Concomitant]
     Active Substance: TADALAFIL
  7. GABAPENTIN [Concomitant]
     Active Substance: GABAPENTIN
  8. DULAGLUTIDE [Concomitant]
     Active Substance: DULAGLUTIDE

REACTIONS (7)
  - Fatigue [None]
  - Retching [None]
  - Body temperature abnormal [None]
  - Respiratory rate increased [None]
  - Blood pressure increased [None]
  - Heart rate increased [None]
  - Chest discomfort [None]

NARRATIVE: CASE EVENT DATE: 20220607
